FAERS Safety Report 23127771 (Version 1)
Quarter: 2023Q4

REPORT INFORMATION
  Report Type: Spontaneous
  Country: US (occurrence: US)
  Receive Date: 20231031
  Receipt Date: 20231031
  Transmission Date: 20240110
  Serious: No
  Sender: FDA-Public Use
  Company Number: US-SA-SAC20231026000867

PATIENT
  Age: 45 Year
  Sex: Male

DRUGS (1)
  1. ELOCTATE [Suspect]
     Active Substance: EFMOROCTOCOG ALFA
     Dosage: 3100 U
     Route: 042

REACTIONS (1)
  - Periorbital haemorrhage [Unknown]

NARRATIVE: CASE EVENT DATE: 20231002
